FAERS Safety Report 7535317-5 (Version None)
Quarter: 2011Q2

REPORT INFORMATION
  Report Type: 
  Country: None (occurrence: None)
  Receive Date: 20110609
  Receipt Date: 20080212
  Transmission Date: 20111010
  Serious: Yes (Life-Threatening, Hospitalization, Other)
  Sender: FDA-Public Use
  Company Number: PHMT2007CA02377

PATIENT
  Sex: Female

DRUGS (3)
  1. VALPROATE SODIUM [Concomitant]
  2. CLOZAPINE [Suspect]
     Indication: SCHIZOPHRENIA
     Dosage: 400 MG/DAY
     Route: 048
     Dates: start: 20060809
  3. VALPROATE SODIUM [Concomitant]

REACTIONS (5)
  - FASCIITIS [None]
  - PAROTITIS [None]
  - STREPTOCOCCAL SEPSIS [None]
  - TOOTH ABSCESS [None]
  - COMA [None]
